FAERS Safety Report 4596729-5 (Version None)
Quarter: 2005Q1

REPORT INFORMATION
  Report Type: 
  Country: None (occurrence: None)
  Receive Date: 20050302
  Receipt Date: 20050208
  Transmission Date: 20050727
  Serious: Yes (Other)
  Sender: FDA-Public Use
  Company Number: AU-GLAXOSMITHKLINE-B0371892A

PATIENT
  Age: 51 Year
  Sex: Female
  Weight: 63 kg

DRUGS (4)
  1. IMIGRAN [Suspect]
     Indication: MIGRAINE
     Dosage: 50MG UNKNOWN
  2. PARACETAMOL [Concomitant]
     Dosage: 2TAB FOUR TIMES PER DAY
     Route: 048
  3. GABAPENTIN [Concomitant]
     Dosage: 300MG PER DAY
     Route: 048
  4. MOVICOL [Concomitant]
     Route: 048

REACTIONS (5)
  - DISORIENTATION [None]
  - DIZZINESS [None]
  - FEELING ABNORMAL [None]
  - HYPERTENSION [None]
  - SENSATION OF BLOOD FLOW [None]
